FAERS Safety Report 11628029 (Version 2)
Quarter: 2015Q4

REPORT INFORMATION
  Report Type: Spontaneous
  Country: FR (occurrence: FR)
  Receive Date: 20151014
  Receipt Date: 20151019
  Transmission Date: 20160304
  Serious: Yes (Hospitalization)
  Sender: FDA-Public Use
  Company Number: FR-SUN PHARMACEUTICAL INDUSTRIES LTD-2015R1-104330

PATIENT
  Age: 83 Year
  Sex: Male

DRUGS (2)
  1. GEMCITABINE [Suspect]
     Active Substance: GEMCITABINE\GEMCITABINE HYDROCHLORIDE
     Indication: PANCREATIC CARCINOMA
  2. GEMCITABINE [Suspect]
     Active Substance: GEMCITABINE\GEMCITABINE HYDROCHLORIDE
     Indication: PANCREATIC CARCINOMA
     Dosage: 1000 MG/M2  AS A MONOTHERAPY OVER A 30-MINUTE ON DAYS 1, 8, AND 15 OF A 28-DAY CYCLE
     Route: 042

REACTIONS (1)
  - Pulmonary veno-occlusive disease [Recovering/Resolving]

NARRATIVE: CASE EVENT DATE: 201309
